FAERS Safety Report 19022821 (Version 3)
Quarter: 2023Q2

REPORT INFORMATION
  Report Type: Spontaneous
  Country: US (occurrence: US)
  Receive Date: 20210317
  Receipt Date: 20230504
  Transmission Date: 20230721
  Serious: Yes (Hospitalization, Other)
  Sender: FDA-Public Use
  Company Number: US-GILEAD-2021-0519934

PATIENT
  Sex: Female
  Weight: 58.967 kg

DRUGS (41)
  1. ATRIPLA [Suspect]
     Active Substance: EFAVIRENZ\EMTRICITABINE\TENOFOVIR DISOPROXIL FUMARATE
     Indication: HIV infection
     Dosage: UNK
     Route: 048
     Dates: start: 2006, end: 201606
  2. ATRIPLA [Suspect]
     Active Substance: EFAVIRENZ\EMTRICITABINE\TENOFOVIR DISOPROXIL FUMARATE
     Dosage: UNK
     Route: 048
     Dates: start: 2008, end: 201107
  3. ATRIPLA [Suspect]
     Active Substance: EFAVIRENZ\EMTRICITABINE\TENOFOVIR DISOPROXIL FUMARATE
     Dosage: UNK
     Route: 048
     Dates: start: 20131113, end: 20140805
  4. ATRIPLA [Suspect]
     Active Substance: EFAVIRENZ\EMTRICITABINE\TENOFOVIR DISOPROXIL FUMARATE
     Dosage: UNK
     Route: 048
     Dates: start: 20140808, end: 20160724
  5. ATRIPLA [Suspect]
     Active Substance: EFAVIRENZ\EMTRICITABINE\TENOFOVIR DISOPROXIL FUMARATE
     Dosage: UNK
     Route: 048
     Dates: start: 20110712, end: 20131117
  6. ATRIPLA [Suspect]
     Active Substance: EFAVIRENZ\EMTRICITABINE\TENOFOVIR DISOPROXIL FUMARATE
     Dosage: UNK
     Route: 048
     Dates: start: 201101, end: 201107
  7. JULUCA [Concomitant]
     Active Substance: DOLUTEGRAVIR SODIUM\RILPIVIRINE HYDROCHLORIDE
  8. TRIUMEQ [Concomitant]
     Active Substance: ABACAVIR SULFATE\DOLUTEGRAVIR SODIUM\LAMIVUDINE
  9. ALBUTEROL [Concomitant]
     Active Substance: ALBUTEROL
  10. AMOXICILLIN [Concomitant]
     Active Substance: AMOXICILLIN
  11. AMOXICILLIN [Concomitant]
     Active Substance: AMOXICILLIN
  12. AZITHROMYCIN [Concomitant]
     Active Substance: AZITHROMYCIN
  13. BUPROPION [Concomitant]
     Active Substance: BUPROPION
  14. CEFPODOXIME [Concomitant]
     Active Substance: CEFPODOXIME
  15. CEPHALEXIN HYDROCHLORIDE [Concomitant]
     Active Substance: CEPHALEXIN HYDROCHLORIDE
  16. CIPROFLOXACIN [Concomitant]
     Active Substance: CIPROFLOXACIN
  17. ENDOCET [Concomitant]
     Active Substance: ACETAMINOPHEN\OXYCODONE HYDROCHLORIDE
  18. FLUCELVAX NOS [Concomitant]
     Active Substance: INFLUENZA A VIRUS A/BRISBANE/10/2010 (H1N1) ANTIGEN (MDCK CELL DERIVED, PROPIOLACTONE INACTIVATED)\I
  19. FLUZONE [Concomitant]
     Active Substance: INFLUENZA A VIRUS A/CALIFORNIA/7/2009 X-179A (H1N1) ANTIGEN (FORMALDEHYDE INACTIVATED)\INFLUENZA A V
  20. HYDROCODONE [Concomitant]
     Active Substance: HYDROCODONE
  21. HYOSCYAMINE [Concomitant]
     Active Substance: HYOSCYAMINE
  22. LISINOPRIL [Concomitant]
     Active Substance: LISINOPRIL
  23. LORATADINE [Concomitant]
     Active Substance: LORATADINE
  24. LYRICA [Concomitant]
     Active Substance: PREGABALIN
  25. METHYLPREDNISOLONE [Concomitant]
     Active Substance: METHYLPREDNISOLONE
  26. METOPROLOL [Concomitant]
     Active Substance: METOPROLOL
  27. NAPROXEN [Concomitant]
     Active Substance: NAPROXEN
  28. NITROSTAT [Concomitant]
     Active Substance: NITROGLYCERIN
  29. ONDANSETRON [Concomitant]
     Active Substance: ONDANSETRON
  30. OXYBUTYNIN [Concomitant]
     Active Substance: OXYBUTYNIN
  31. OXYCODONE [Concomitant]
     Active Substance: OXYCODONE
  32. PHENAZOPYRIDINE [Concomitant]
     Active Substance: PHENAZOPYRIDINE
  33. PRAVASTATIN [Concomitant]
     Active Substance: PRAVASTATIN
  34. PREDNISONE [Concomitant]
     Active Substance: PREDNISONE
  35. PREGABALIN [Concomitant]
     Active Substance: PREGABALIN
  36. PROAIR HFA [Concomitant]
     Active Substance: ALBUTEROL SULFATE
  37. PROVENTIL [Concomitant]
     Active Substance: ALBUTEROL
  38. SERTRALINE [Concomitant]
     Active Substance: SERTRALINE HYDROCHLORIDE
  39. SULFAMETHOXAZOLE [Concomitant]
     Active Substance: SULFAMETHOXAZOLE
  40. TAMSULOSIN [Concomitant]
     Active Substance: TAMSULOSIN
  41. TIZANIDINE [Concomitant]
     Active Substance: TIZANIDINE

REACTIONS (16)
  - Osteoporosis [Unknown]
  - Acute kidney injury [Not Recovered/Not Resolved]
  - Chronic kidney disease [Not Recovered/Not Resolved]
  - Renal impairment [Not Recovered/Not Resolved]
  - Nephrolithiasis [Unknown]
  - Nephrectomy [Unknown]
  - Emotional distress [Not Recovered/Not Resolved]
  - Anhedonia [Not Recovered/Not Resolved]
  - Bone density decreased [Unknown]
  - Anxiety [Not Recovered/Not Resolved]
  - Pain [Not Recovered/Not Resolved]
  - Blood creatinine increased [Not Recovered/Not Resolved]
  - Osteopenia [Not Recovered/Not Resolved]
  - Fatigue [Unknown]
  - Nausea [Unknown]
  - Decreased activity [Unknown]

NARRATIVE: CASE EVENT DATE: 20060101
